FAERS Safety Report 14920044 (Version 1)
Quarter: 2018Q2

REPORT INFORMATION
  Report Type: Spontaneous
  Country: EG (occurrence: EG)
  Receive Date: 20180521
  Receipt Date: 20180521
  Transmission Date: 20180711
  Serious: Yes (Hospitalization)
  Sender: FDA-Public Use
  Company Number: EG-NOVOPROD-600355

PATIENT
  Age: 53 Year
  Sex: Male
  Weight: 125 kg

DRUGS (4)
  1. EZAPRIL [Concomitant]
     Indication: HYPERTENSION
     Dosage: ONCE DAILY
     Route: 048
  2. CONCOR [Concomitant]
     Active Substance: BISOPROLOL FUMARATE
     Indication: HYPERTENSION
     Dosage: ONCE DAILY
     Route: 048
  3. LOXIL [Concomitant]
     Indication: CORONARY ARTERY STENOSIS
     Dosage: ONCE DAILY
     Route: 048
  4. MIXTARD HUMAN 70/30 [Suspect]
     Active Substance: INSULIN HUMAN
     Indication: TYPE 2 DIABETES MELLITUS
     Dosage: 40 MORNING , 30 NIGHT
     Route: 058
     Dates: start: 2009

REACTIONS (2)
  - Intervertebral disc protrusion [Not Recovered/Not Resolved]
  - Hyperglycaemia [Not Recovered/Not Resolved]
